FAERS Safety Report 9135163 (Version 1)
Quarter: 2013Q1

REPORT INFORMATION
  Report Type: Spontaneous
  Country: US (occurrence: US)
  Receive Date: 20130304
  Receipt Date: 20130304
  Transmission Date: 20140127
  Serious: No
  Sender: FDA-Public Use
  Company Number: US-COVIDIEN/TYCO HEALTHCARE/MALLINCKRODT-T201204311

PATIENT
  Age: 77 Year
  Sex: Female

DRUGS (7)
  1. RESTORIL [Suspect]
     Indication: INSOMNIA
     Dosage: 30 MG AT NIGHT
     Route: 048
     Dates: start: 201211, end: 20121208
  2. XANAX [Concomitant]
     Indication: ANXIETY
     Dosage: UNK
  3. PRADAXA [Concomitant]
     Indication: ATRIAL FIBRILLATION
     Dosage: UNK
  4. VERAPAMIL [Concomitant]
     Indication: ATRIAL FIBRILLATION
     Dosage: UNK
  5. HYDROCODONE BITARTRATE AND ACETAMINOPHEN [Concomitant]
     Indication: PAIN
     Dosage: UNK
  6. ALBUTEROL                          /00139501/ [Concomitant]
     Indication: CHRONIC OBSTRUCTIVE PULMONARY DISEASE
     Dosage: UNK
  7. SPIRIVA [Concomitant]
     Indication: CHRONIC OBSTRUCTIVE PULMONARY DISEASE
     Dosage: UNK

REACTIONS (2)
  - Wheezing [Recovered/Resolved]
  - Abdominal discomfort [Not Recovered/Not Resolved]
